FAERS Safety Report 8256714-9 (Version None)
Quarter: 2012Q2

REPORT INFORMATION
  Report Type: 
  Country: None (occurrence: None)
  Receive Date: 20120403
  Receipt Date: 20120322
  Transmission Date: 20120825
  Serious: Yes (Hospitalization)
  Sender: FDA-Public Use
  Company Number: DE-JNJFOC-20120102924

PATIENT
  Age: 50 Year
  Sex: Male
  Weight: 67 kg

DRUGS (9)
  1. DARUNAVIR HYDRATE [Suspect]
     Indication: HIV INFECTION
     Route: 048
     Dates: start: 20110620
  2. ASPIRIN [Concomitant]
  3. EZETIMIBE [Concomitant]
     Dosage: DOSE 10/20MG
  4. RAMIPRIL [Concomitant]
     Route: 065
  5. EZETIMIBE [Concomitant]
     Dosage: 10/20MG
     Route: 065
  6. TENOFOVIR [Concomitant]
     Route: 065
     Dates: start: 20110620
  7. EMTRICITABINE/TENOFOVIR DISOPROXIL FUMARATE [Suspect]
     Indication: HIV INFECTION
     Route: 048
     Dates: start: 20110620
  8. NEBIVOLOL [Concomitant]
     Route: 065
  9. RITONAVIR [Suspect]
     Indication: HIV INFECTION
     Route: 048
     Dates: start: 20110620

REACTIONS (1)
  - CALCULUS URINARY [None]
